FAERS Safety Report 10028111 (Version 1)
Quarter: 2014Q1

REPORT INFORMATION
  Report Type: Spontaneous
  Country: US (occurrence: US)
  Receive Date: 20140321
  Receipt Date: 20140321
  Transmission Date: 20141002
  Serious: Yes (Hospitalization, Other)
  Sender: FDA-Public Use
  Company Number: US-TEVA-469888USA

PATIENT
  Age: 65 Year
  Sex: Male

DRUGS (9)
  1. LISINOPRIL [Suspect]
     Dosage: 10 MILLIGRAM DAILY;
     Route: 048
  2. LITHIUM [Suspect]
     Indication: BIPOLAR DISORDER
     Route: 048
  3. METOPROLOL [Concomitant]
     Dosage: 25 MILLIGRAM DAILY;
     Route: 048
  4. ASPIRIN [Concomitant]
     Dosage: 81 MILLIGRAM DAILY;
     Route: 048
  5. WARFARIN [Concomitant]
     Dosage: 5MG EVERY NIGHT AT BED TIME
     Route: 048
  6. SPIRONOLACTONE [Concomitant]
     Dosage: 12.5 MILLIGRAM DAILY;
     Route: 048
  7. SIMVASTATIN [Concomitant]
     Dosage: 40 MG EVERY NIGHT AT BED TIME
     Route: 048
  8. GABAPENTIN [Concomitant]
     Route: 048
  9. SILDENAFIL [Concomitant]
     Dosage: 100 MG DAILY AS NEEDED

REACTIONS (2)
  - Aphasia [Recovered/Resolved]
  - Acute prerenal failure [Unknown]
